FAERS Safety Report 19507229 (Version 1)
Quarter: 2021Q3

REPORT INFORMATION
  Report Type: Spontaneous
  Country: US (occurrence: US)
  Receive Date: 20210708
  Receipt Date: 20210708
  Transmission Date: 20211014
  Serious: No
  Sender: FDA-Public Use
  Company Number: US-BIODELIVERY SCIENCES INTERNATIONAL-2021BDSI0141

PATIENT
  Sex: Female

DRUGS (1)
  1. BUPRENORPHINE. [Suspect]
     Active Substance: BUPRENORPHINE
     Indication: PRODUCT USED FOR UNKNOWN INDICATION
     Route: 002
     Dates: start: 201910, end: 202103

REACTIONS (5)
  - Feeding disorder [Recovering/Resolving]
  - Tooth injury [Not Recovered/Not Resolved]
  - Discomfort [Unknown]
  - Product prescribing error [Unknown]
  - Pain [Unknown]

NARRATIVE: CASE EVENT DATE: 201910
